FAERS Safety Report 5512322-1 (Version None)
Quarter: 2007Q4

REPORT INFORMATION
  Report Type: 
  Country: None (occurrence: None)
  Receive Date: 20071112
  Receipt Date: 20071026
  Transmission Date: 20080405
  Serious: No
  Sender: FDA-Public Use
  Company Number: A0690084A

PATIENT
  Age: 8 Year
  Sex: Female

DRUGS (3)
  1. VERAMYST [Suspect]
     Route: 045
     Dates: start: 20070606, end: 20071023
  2. SINGULAIR [Concomitant]
  3. ADVAIR DISKUS 100/50 [Concomitant]

REACTIONS (1)
  - INTRAOCULAR PRESSURE INCREASED [None]
